FAERS Safety Report 18693465 (Version 3)
Quarter: 2023Q4

REPORT INFORMATION
  Report Type: Spontaneous
  Country: FR (occurrence: FR)
  Receive Date: 20210104
  Receipt Date: 20231013
  Transmission Date: 20240109
  Serious: Yes (Hospitalization)
  Sender: FDA-Public Use
  Company Number: FR-SA-2018SA113358

PATIENT
  Age: 71 Year
  Sex: Male
  Weight: 80 kg

DRUGS (6)
  1. CABAZITAXEL [Suspect]
     Active Substance: CABAZITAXEL
     Indication: Prostate cancer metastatic
     Dosage: UNK UNK, QCY
     Route: 051
     Dates: start: 20180129, end: 20180129
  2. CABAZITAXEL [Suspect]
     Active Substance: CABAZITAXEL
     Dosage: UNK UNK, QCY
     Route: 051
     Dates: start: 20180403, end: 20180403
  3. PREDNISONE [Suspect]
     Active Substance: PREDNISONE
     Indication: Prostate cancer metastatic
     Dosage: UNK
     Route: 048
  4. LENOGRASTIM [Suspect]
     Active Substance: LENOGRASTIM
     Indication: Product used for unknown indication
     Dosage: UNK
     Route: 051
  5. METOCLOPRAMIDE [Concomitant]
     Active Substance: METOCLOPRAMIDE
     Indication: Nausea
     Dosage: UNK
     Route: 065
     Dates: start: 20180216
  6. ZOLADEX [Concomitant]
     Active Substance: GOSERELIN ACETATE
     Indication: Product used for unknown indication
     Dosage: UNK
     Route: 065
     Dates: start: 20110215

REACTIONS (2)
  - Malnutrition [Recovered/Resolved]
  - Urinary tract infection [Recovered/Resolved]

NARRATIVE: CASE EVENT DATE: 20180413
